FAERS Safety Report 4769125-5 (Version None)
Quarter: 2005Q3

REPORT INFORMATION
  Report Type: 
  Country: None (occurrence: None)
  Receive Date: 20050912
  Receipt Date: 20050607
  Transmission Date: 20060218
  Serious: Yes (Hospitalization)
  Sender: FDA-Public Use
  Company Number: 2005-01202

PATIENT
  Age: 79 Year
  Sex: Male
  Weight: 102.9 kg

DRUGS (5)
  1. VELCADE [Suspect]
     Indication: MULTIPLE MYELOMA
     Dosage: 1.30 MG/M2, INTRAVENOUS
     Route: 042
     Dates: start: 20041213, end: 20050304
  2. GLIPIZIDE [Concomitant]
  3. MEGESTROL ACETATE [Concomitant]
  4. TRAMADOL [Concomitant]
  5. TRAVOPROST [Concomitant]

REACTIONS (5)
  - ARTHRALGIA [None]
  - ASTHENIA [None]
  - FATIGUE [None]
  - NEUROPATHY PERIPHERAL [None]
  - PARAESTHESIA [None]
